FAERS Safety Report 6784751-X (Version None)
Quarter: 2010Q2

REPORT INFORMATION
  Report Type: 
  Country: None (occurrence: None)
  Receive Date: 20100622
  Receipt Date: 20100607
  Transmission Date: 20101027
  Serious: Yes (Hospitalization, Disabling)
  Sender: FDA-Public Use
  Company Number: PHHY2010NL35509

PATIENT
  Sex: Male

DRUGS (4)
  1. LEPONEX [Suspect]
     Indication: SCHIZOPHRENIA
     Dosage: 350 MG, QD
     Route: 048
     Dates: start: 20100420
  2. LEPONEX [Suspect]
     Dosage: 150 MG DAILY
     Dates: start: 20100529, end: 20100530
  3. DIAZEPAM [Concomitant]
     Dosage: 30 MG, UNK
  4. LORAZEPAM [Concomitant]
     Dosage: 5 MG, UNK

REACTIONS (3)
  - PENILE OEDEMA [None]
  - PENILE ULCERATION [None]
  - PRIAPISM [None]
